FAERS Safety Report 18403545 (Version 1)
Quarter: 2020Q4

REPORT INFORMATION
  Report Type: Spontaneous
  Country: PL (occurrence: PL)
  Receive Date: 20201020
  Receipt Date: 20201020
  Transmission Date: 20210114
  Serious: Yes (Hospitalization, Other)
  Sender: FDA-Public Use
  Company Number: PL-ALKEM LABORATORIES LIMITED-PL-ALKEM-2020-06729

PATIENT
  Age: 19 Year
  Sex: Female

DRUGS (2)
  1. CYCLOSPORINA [Suspect]
     Active Substance: CYCLOSPORINE
     Indication: PROPHYLAXIS AGAINST GRAFT VERSUS HOST DISEASE
     Dosage: UNK
     Route: 065
  2. MYCOPHENOLATE MOFETIL. [Suspect]
     Active Substance: MYCOPHENOLATE MOFETIL
     Indication: IMMUNOSUPPRESSANT DRUG THERAPY
     Dosage: UNK
     Route: 042

REACTIONS (6)
  - Graft versus host disease in skin [Unknown]
  - Thrombotic microangiopathy [Recovered/Resolved]
  - Pancreatic enzymes increased [Recovered/Resolved]
  - Cytomegalovirus infection reactivation [Unknown]
  - Hepatic enzyme increased [Recovered/Resolved]
  - Acute kidney injury [Unknown]
